FAERS Safety Report 4877573-8 (Version None)
Quarter: 2006Q1

REPORT INFORMATION
  Report Type: 
  Country: None (occurrence: None)
  Receive Date: 20060111
  Receipt Date: 20060105
  Transmission Date: 20060701
  Serious: Yes (Other)
  Sender: FDA-Public Use
  Company Number: GB-GLAXOSMITHKLINE-B0405652A

PATIENT

DRUGS (2)
  1. PAROXETINE HCL [Suspect]
     Indication: DEPRESSION
     Dosage: 20MG PER DAY
  2. FOLIC ACID [Concomitant]

REACTIONS (11)
  - ATRIOVENTRICULAR SEPTAL DEFECT [None]
  - CONGENITAL HYPOPARATHYROIDISM [None]
  - CONGENITAL MUSCULOSKELETAL ANOMALY [None]
  - CONGENITAL THYMUS ABSENCE [None]
  - DOUBLE OUTLET RIGHT VENTRICLE [None]
  - DRUG EXPOSURE DURING PREGNANCY [None]
  - FEEDING DISORDER NEONATAL [None]
  - HEART RATE INCREASED [None]
  - INTERRUPTION OF AORTIC ARCH [None]
  - NEONATAL HEPATOMEGALY [None]
  - TRUNCUS ARTERIOSUS PERSISTENT [None]
